FAERS Safety Report 12785578 (Version 3)
Quarter: 2020Q4

REPORT INFORMATION
  Report Type: Report from Study
  Country: DE (occurrence: JP)
  Receive Date: 20160927
  Receipt Date: 20201120
  Transmission Date: 20210113
  Serious: Yes (Other)
  Sender: FDA-Public Use
  Company Number: JP-BRISTOL-MYERS SQUIBB COMPANY-BMS-2015-042468

PATIENT
  Age: 65 Year
  Sex: Male

DRUGS (16)
  1. CETUXIMAB. [Suspect]
     Active Substance: CETUXIMAB
     Dosage: 370 MG, WEEKLY (1/W)
     Route: 041
  2. CDDP [Concomitant]
     Active Substance: CISPLATIN
     Indication: OROPHARYNGEAL CANCER
     Dosage: 120 MG, MONTHLY (1/M)
     Route: 041
     Dates: start: 20150120, end: 20150120
  3. MINOMYCIN [Concomitant]
     Active Substance: MINOCYCLINE HYDROCHLORIDE
     Indication: PRODUCT USED FOR UNKNOWN INDICATION
     Dosage: 100 MG, QD
     Route: 048
     Dates: start: 20150120, end: 20150401
  4. CETUXIMAB. [Suspect]
     Active Substance: CETUXIMAB
     Dosage: 360 MG, UNKNOWN
     Route: 041
     Dates: start: 20150305
  5. 5-FU [FLUOROURACIL] [Concomitant]
     Active Substance: FLUOROURACIL
     Indication: SQUAMOUS CELL CARCINOMA OF HEAD AND NECK
     Dosage: UNK UNK, UNKNOWN
     Route: 042
     Dates: end: 20150309
  6. EMEND [Concomitant]
     Active Substance: APREPITANT
     Indication: PRODUCT USED FOR UNKNOWN INDICATION
     Dosage: 1TIME: 125MG, 80MG, 3DAYS
     Route: 048
     Dates: start: 20150120, end: 20150221
  7. CETUXIMAB. [Suspect]
     Active Substance: CETUXIMAB
     Indication: OROPHARYNGEAL CANCER
     Dosage: 600 MG, UNKNOWN
     Route: 041
     Dates: start: 20150120, end: 20150305
  8. CDDP [Concomitant]
     Active Substance: CISPLATIN
     Indication: SQUAMOUS CELL CARCINOMA OF HEAD AND NECK
     Dosage: UNK UNK, UNKNOWN
     Route: 042
     Dates: end: 20150309
  9. MANNITOL. [Concomitant]
     Active Substance: MANNITOL
     Indication: PRODUCT USED FOR UNKNOWN INDICATION
     Dosage: 300 ML, MONTHLY (1/M)
     Route: 041
     Dates: start: 20150120, end: 20150219
  10. 5-FU [FLUOROURACIL] [Concomitant]
     Active Substance: FLUOROURACIL
     Indication: OROPHARYNGEAL CANCER
     Dosage: 1000 MG, MONTHLY (1/M)
     Dates: start: 20150120, end: 20150123
  11. ALOXI [Concomitant]
     Active Substance: PALONOSETRON HYDROCHLORIDE
     Indication: PRODUCT USED FOR UNKNOWN INDICATION
     Dosage: 0.75 MG, MONTHLY (1/M)
     Route: 041
     Dates: start: 20150120, end: 20150219
  12. NORMAL SALINE [Concomitant]
     Active Substance: SODIUM CHLORIDE
     Indication: PRODUCT USED FOR UNKNOWN INDICATION
     Dosage: UNK UNK, UNKNOWN
     Route: 041
     Dates: start: 20150119, end: 20150305
  13. DECADRON [Concomitant]
     Active Substance: DEXAMETHASONE
     Indication: PRODUCT USED FOR UNKNOWN INDICATION
     Dosage: 6.6 MG, WEEKLY (1/W)
     Route: 041
     Dates: start: 20150120, end: 20150305
  14. RESTAMIN [DIPHENHYDRAMINE] [Concomitant]
     Indication: PRODUCT USED FOR UNKNOWN INDICATION
     Dosage: 50 MG, WEEKLY (1/W)
     Route: 048
     Dates: start: 20150120, end: 20150305
  15. 5-FU [FLUOROURACIL] [Concomitant]
     Active Substance: FLUOROURACIL
     Dosage: 1000 MG, MONTHLY (1/M)
     Dates: start: 20150219, end: 20150222
  16. CDDP [Concomitant]
     Active Substance: CISPLATIN
     Dosage: 110 MG, MONTHLY (1/M)
     Dates: start: 20150219, end: 20150219

REACTIONS (12)
  - Pneumonia [Recovered/Resolved]
  - Hypokalaemia [Recovered/Resolved]
  - White blood cell count decreased [Recovered/Resolved]
  - Dermatitis acneiform [Recovered/Resolved]
  - Alanine aminotransferase increased [Recovered/Resolved]
  - Dry skin [Recovered/Resolved]
  - Hypocalcaemia [Recovered/Resolved]
  - Blood urea increased [Recovered/Resolved]
  - Anaemia [Recovering/Resolving]
  - Platelet count decreased [Recovered/Resolved]
  - Aspartate aminotransferase increased [Recovered/Resolved]
  - Blood alkaline phosphatase increased [Recovered/Resolved]

NARRATIVE: CASE EVENT DATE: 20150202
